FAERS Safety Report 10156197 (Version 1)
Quarter: 2014Q2

REPORT INFORMATION
  Report Type: Spontaneous
  Country: US (occurrence: US)
  Receive Date: 20140506
  Receipt Date: 20140506
  Transmission Date: 20141212
  Serious: Yes (Life-Threatening, Hospitalization, Other)
  Sender: FDA-Public Use
  Company Number: PHHY2014US052977

PATIENT
  Age: 20 Year
  Sex: Male

DRUGS (2)
  1. DOXEPIN [Suspect]
  2. CITALOPRAM [Suspect]

REACTIONS (12)
  - Unresponsive to stimuli [Unknown]
  - Haemodynamic instability [Unknown]
  - Cardiac arrest [Recovered/Resolved]
  - Bradycardia [Recovered/Resolved]
  - Hypotension [Unknown]
  - Generalised tonic-clonic seizure [Unknown]
  - Pancreatitis [Recovered/Resolved]
  - Hyperlipidaemia [Recovered/Resolved]
  - Abdominal pain [Unknown]
  - Abdominal pain upper [Recovered/Resolved]
  - Food intolerance [Recovered/Resolved]
  - Overdose [Unknown]
